FAERS Safety Report 8371174-5 (Version None)
Quarter: 2012Q1

REPORT INFORMATION
  Report Type: 
  Country: None (occurrence: None)
  Receive Date: 20120323
  Receipt Date: 20110106
  Transmission Date: 20120608
  Serious: Yes (Disabling)
  Sender: FDA-Public Use
  Company Number: 163-21880-10111508

PATIENT
  Age: 54 Year
  Sex: Female
  Weight: 56.246 kg

DRUGS (13)
  1. REVLIMID [Suspect]
     Indication: MULTIPLE MYELOMA
     Dosage: 10 MG, 1 IN 1 D, PO 5 MG, 1 IN 1 D, PO
     Route: 048
     Dates: start: 20090429
  2. REVLIMID [Suspect]
     Indication: MULTIPLE MYELOMA
     Dosage: 10 MG, 1 IN 1 D, PO 5 MG, 1 IN 1 D, PO
     Route: 048
     Dates: start: 20090514, end: 20091231
  3. REVLIMID [Suspect]
     Indication: MULTIPLE MYELOMA
     Dosage: 10 MG, 1 IN 1 D, PO 5 MG, 1 IN 1 D, PO
     Route: 048
     Dates: start: 20101110
  4. LORAZEPAM [Concomitant]
  5. LACTULOSE [Concomitant]
  6. ONDANSETRON [Concomitant]
  7. FAMOTIDINE [Concomitant]
  8. RENVELA [Concomitant]
  9. METOPROLOL TARTRATE [Concomitant]
  10. WARFARIN SODIUM [Concomitant]
  11. DEXAMETHASONE [Concomitant]
  12. VELCADE [Concomitant]
  13. DIGOXIN [Concomitant]

REACTIONS (2)
  - GLOMERULAR FILTRATION RATE DECREASED [None]
  - RASH [None]
